FAERS Safety Report 10034024 (Version 1)
Quarter: 2014Q1

REPORT INFORMATION
  Report Type: Spontaneous
  Country: IN (occurrence: None)
  Receive Date: 20140324
  Receipt Date: 20140324
  Transmission Date: 20141002
  Serious: Yes (Hospitalization)
  Sender: FDA-Public Use
  Company Number: None

PATIENT
  Age: 50 Year
  Sex: Female
  Weight: 68 kg

DRUGS (9)
  1. PIPTAZ [Suspect]
     Indication: APPLICATION SITE INFECTION
     Route: 042
     Dates: start: 20140321, end: 20140322
  2. PANTOP [Concomitant]
  3. PERINORM [Concomitant]
  4. H. ACTRAPID [Concomitant]
  5. DOLO [Concomitant]
  6. ERYTHROPOITIN [Concomitant]
  7. PIPTAZ [Concomitant]
  8. VANCOMYCIN [Concomitant]
  9. POTCLOR [Concomitant]

REACTIONS (1)
  - Frequent bowel movements [None]
